FAERS Safety Report 4709040-6 (Version None)
Quarter: 2005Q3

REPORT INFORMATION
  Report Type: 
  Country: None (occurrence: None)
  Receive Date: 20050707
  Receipt Date: 20050622
  Transmission Date: 20060218
  Serious: Yes (Hospitalization)
  Sender: FDA-Public Use
  Company Number: 2005089844

PATIENT
  Age: 51 Year
  Sex: Male

DRUGS (3)
  1. XANAX XR [Suspect]
     Indication: ANXIETY
     Dosage: 3 MG, ORAL
     Route: 048
     Dates: start: 20050512
  2. XANAX XR [Suspect]
     Indication: POST-TRAUMATIC STRESS DISORDER
     Dosage: 3 MG, ORAL
     Route: 048
     Dates: start: 20050512
  3. FLUVOXAMINE MALEATE [Suspect]
     Indication: DEPRESSION
     Dosage: 50 MG, ORAL
     Route: 048
     Dates: start: 20050512

REACTIONS (9)
  - CATHETER SITE PAIN [None]
  - CHILLS [None]
  - DYSURIA [None]
  - LEUKOCYTOSIS [None]
  - MICTURITION URGENCY [None]
  - PAIN [None]
  - PROSTATIC PAIN [None]
  - PYREXIA [None]
  - URINARY RETENTION [None]
